FAERS Safety Report 15583229 (Version 2)
Quarter: 2019Q2

REPORT INFORMATION
  Report Type: Spontaneous
  Country: CA (occurrence: CA)
  Receive Date: 20181105
  Receipt Date: 20190610
  Transmission Date: 20190711
  Serious: Yes (Death)
  Sender: FDA-Public Use
  Company Number: CA-HLSUS-2018-CA-001564

PATIENT
  Age: 44 Year
  Sex: Male

DRUGS (2)
  1. QUETIAPINE. [Concomitant]
     Active Substance: QUETIAPINE
  2. CLOZAPINE. [Suspect]
     Active Substance: CLOZAPINE

REACTIONS (7)
  - Pneumonia [Fatal]
  - Pulmonary oedema [Fatal]
  - Arrhythmia [Fatal]
  - Agitation [Unknown]
  - Pulmonary congestion [Fatal]
  - Cardio-respiratory distress [Fatal]
  - Sudden cardiac death [Fatal]

NARRATIVE: CASE EVENT DATE: 2017
